FAERS Safety Report 5751229-1 (Version None)
Quarter: 2008Q2

REPORT INFORMATION
  Report Type: 
  Country: None (occurrence: None)
  Receive Date: 20080528
  Receipt Date: 20080505
  Transmission Date: 20081010
  Serious: No
  Sender: FDA-Public Use
  Company Number: US-BOEHRINGER INGELHEIM GMBH, GERMANY-2008-BP-07044BP

PATIENT
  Age: 80 Year
  Sex: Female

DRUGS (10)
  1. SPIRIVA [Suspect]
     Indication: EMPHYSEMA
     Route: 055
     Dates: start: 20070101, end: 20080501
  2. SPIRIVA [Suspect]
     Indication: CHRONIC OBSTRUCTIVE PULMONARY DISEASE
  3. ZYRTEC [Concomitant]
     Indication: SEASONAL ALLERGY
  4. ASPIRIN [Concomitant]
     Indication: CARDIOVASCULAR EVENT PROPHYLAXIS
  5. LOZOL [Concomitant]
     Indication: HYPERTENSION
     Dates: start: 19700101
  6. XANAX [Concomitant]
     Indication: INSOMNIA
  7. MAXZIDE [Concomitant]
  8. ALBUTEROL [Concomitant]
  9. SEREVENT [Concomitant]
  10. ATROVENT [Concomitant]

REACTIONS (1)
  - HOT FLUSH [None]
